FAERS Safety Report 6382144-0 (Version None)
Quarter: 2009Q3

REPORT INFORMATION
  Report Type: 
  Country: None (occurrence: None)
  Receive Date: 20090930
  Receipt Date: 20090923
  Transmission Date: 20100115
  Serious: Yes (Death, Other)
  Sender: FDA-Public Use
  Company Number: PHHY2009TR41304

PATIENT
  Age: 53 Year
  Sex: Male

DRUGS (5)
  1. SANDOSTATIN [Suspect]
     Dosage: 0.1 MG, TID
     Route: 058
  2. SANDOSTATIN LAR [Suspect]
     Dosage: 20 MG PER 4 WEEKS
  3. DOXORUBICIN HCL [Concomitant]
     Dosage: 60 MG, UNK
  4. MITOMYCIN [Concomitant]
     Dosage: 10 MG, UNK
  5. LIPIODOL [Concomitant]

REACTIONS (2)
  - ALTERED STATE OF CONSCIOUSNESS [None]
  - HYPERAMMONAEMIC ENCEPHALOPATHY [None]
